FAERS Safety Report 16906967 (Version 1)
Quarter: 2019Q4

REPORT INFORMATION
  Report Type: Spontaneous
  Country: US (occurrence: US)
  Receive Date: 20191011
  Receipt Date: 20191011
  Transmission Date: 20200122
  Serious: No
  Sender: FDA-Public Use
  Company Number: US-CIPLA LTD.-2019US01396

PATIENT

DRUGS (5)
  1. CELECOXIB. [Suspect]
     Active Substance: CELECOXIB
     Indication: OSTEOARTHRITIS
     Dosage: 2 DOSAGE FORM, EVERY ALTERNATING DAY (QOD)
     Route: 048
     Dates: start: 20181006
  2. VITAMINS                           /00067501/ [Concomitant]
     Active Substance: VITAMINS
     Indication: PRODUCT USED FOR UNKNOWN INDICATION
     Dosage: UNK
     Route: 065
  3. CELEBREX [Concomitant]
     Active Substance: CELECOXIB
     Indication: OSTEOARTHRITIS
     Dosage: 200 MILLIGRAM, BID, CAPSULE
     Route: 048
     Dates: end: 2018
  4. CELECOXIB. [Suspect]
     Active Substance: CELECOXIB
     Dosage: 1 DOSAGE FORM, EVERY ALTERNATING DAY (QOD)
     Route: 048
  5. FLU SHOT [Concomitant]
     Active Substance: INFLUENZA VIRUS VACCINE
     Indication: PRODUCT USED FOR UNKNOWN INDICATION
     Dosage: UNK
     Route: 065
     Dates: start: 20181006, end: 20181006

REACTIONS (1)
  - Incorrect dose administered [Unknown]
